FAERS Safety Report 9525254 (Version 1)
Quarter: 2013Q3

REPORT INFORMATION
  Report Type: Spontaneous
  Country: US (occurrence: US)
  Receive Date: 20130916
  Receipt Date: 20130916
  Transmission Date: 20140515
  Serious: Yes (Other)
  Sender: FDA-Public Use
  Company Number: US-BAYER-2013-110553

PATIENT
  Age: 32 Year
  Sex: Female

DRUGS (8)
  1. YAZ [Suspect]
  2. FISH OIL [Concomitant]
     Dosage: 500 MG, 2 DAILY
     Dates: start: 200803
  3. PROZAC [Concomitant]
     Dosage: 200 MG, UNK
     Dates: start: 200803
  4. VICODIN [Concomitant]
     Dosage: 5/500 MG 1-2 Q ( EVERY) 4-6
     Dates: start: 200803
  5. CYTOMEL [Concomitant]
     Dosage: ? OF 25 MCG
     Dates: start: 20080302
  6. LEVOTHYROXINE [Concomitant]
     Dosage: 75 MG, UNK
     Dates: start: 20080302, end: 20080403
  7. FLUOXETINE [Concomitant]
     Dosage: 20 MG,
     Dates: start: 20080302, end: 20080403
  8. CYCLOBENZAPRINE [Concomitant]
     Dosage: 10 MG, UNK
     Dates: start: 20080405

REACTIONS (1)
  - Deep vein thrombosis [None]
